FAERS Safety Report 4445911-6 (Version None)
Quarter: 2004Q3

REPORT INFORMATION
  Report Type: 
  Country: None (occurrence: None)
  Receive Date: 20040907
  Receipt Date: 20040818
  Transmission Date: 20050211
  Serious: Yes (Hospitalization)
  Sender: FDA-Public Use
  Company Number: 6010136

PATIENT
  Age: 87 Year
  Sex: Female

DRUGS (3)
  1. BISOPROLOL FUMARATE [Suspect]
     Indication: CARDIAC FAILURE CONGESTIVE
     Dosage: 5 MG (1 IN 1 D)
     Route: 048
     Dates: start: 20040408
  2. ENALAPRIL MALEATE [Suspect]
     Indication: CARDIAC FAILURE CONGESTIVE
     Dosage: 20 MG (10 MG, 2 IN 1 D)
     Route: 048
     Dates: start: 20030916
  3. DUSPATAL (MEBEVERINE) [Concomitant]

REACTIONS (1)
  - RENAL FAILURE [None]
